FAERS Safety Report 13707532 (Version 1)
Quarter: 2017Q2

REPORT INFORMATION
  Report Type: Spontaneous
  Country: US (occurrence: US)
  Receive Date: 20170630
  Receipt Date: 20170630
  Transmission Date: 20170830
  Serious: No
  Sender: FDA-Public Use
  Company Number: US-PFIZER INC-2017239941

PATIENT
  Age: 66 Year
  Sex: Female

DRUGS (1)
  1. IBRANCE [Suspect]
     Active Substance: PALBOCICLIB
     Indication: BREAST CANCER METASTATIC
     Dosage: 100 MG, CYCLIC (ON DAYS 1-21,THEN OFF FOR 7 DAYS, TAKE WITH FOOD, AVOID GRAPEFRUIT)
     Route: 048
     Dates: start: 20170526

REACTIONS (1)
  - Hypersomnia [Unknown]
